FAERS Safety Report 21232295 (Version 2)
Quarter: 2022Q3

REPORT INFORMATION
  Report Type: Spontaneous
  Country: US (occurrence: US)
  Receive Date: 20220819
  Receipt Date: 20220909
  Transmission Date: 20221027
  Serious: Yes (Other)
  Sender: FDA-Public Use
  Company Number: US-PFIZER INC-PV202200044514

PATIENT
  Age: 58 Year
  Sex: Female
  Weight: 112.25 kg

DRUGS (2)
  1. IBRANCE [Suspect]
     Active Substance: PALBOCICLIB
     Dosage: 125 MG, CYCLIC (DI-21, Q28)
     Route: 048
     Dates: start: 20210125
  2. LETROZOLE [Concomitant]
     Active Substance: LETROZOLE
     Dosage: 2.5 MG
     Dates: start: 20210125

REACTIONS (5)
  - Renal impairment [Recovered/Resolved]
  - Fatigue [Unknown]
  - Pain [Unknown]
  - Urinary tract infection [Recovered/Resolved]
  - Chills [Unknown]

NARRATIVE: CASE EVENT DATE: 20220608
